FAERS Safety Report 19043408 (Version 1)
Quarter: 2021Q1

REPORT INFORMATION
  Report Type: Spontaneous
  Country: US (occurrence: US)
  Receive Date: 20210322
  Receipt Date: 20210322
  Transmission Date: 20210420
  Serious: Yes (Hospitalization)
  Sender: FDA-Public Use
  Company Number: None

PATIENT
  Age: 62 Year
  Sex: Male

DRUGS (13)
  1. BACLOFEN. [Concomitant]
     Active Substance: BACLOFEN
  2. TIZANIDINE. [Concomitant]
     Active Substance: TIZANIDINE
  3. PREDNISONE. [Concomitant]
     Active Substance: PREDNISONE
  4. TRAZODONE [Concomitant]
     Active Substance: TRAZODONE HYDROCHLORIDE
  5. GABAPENTIN. [Concomitant]
     Active Substance: GABAPENTIN
  6. DULOXETINE. [Concomitant]
     Active Substance: DULOXETINE
  7. IBUPROFEN. [Concomitant]
     Active Substance: IBUPROFEN
  8. TRAMADOL. [Concomitant]
     Active Substance: TRAMADOL
  9. DALFAMPRIDINE. [Suspect]
     Active Substance: DALFAMPRIDINE
     Indication: MULTIPLE SCLEROSIS
     Route: 048
     Dates: start: 20190307
  10. FLUTICASONE. [Concomitant]
     Active Substance: FLUTICASONE
  11. ACYCLOVIR. [Concomitant]
     Active Substance: ACYCLOVIR
  12. LEVOCETRIZI [Concomitant]
  13. OYSCO 500+D [Concomitant]

REACTIONS (1)
  - Hospitalisation [None]
